FAERS Safety Report 18211150 (Version 9)
Quarter: 2021Q3

REPORT INFORMATION
  Report Type: Report from Study
  Country: None (occurrence: NL)
  Receive Date: 20200830
  Receipt Date: 20210727
  Transmission Date: 20211014
  Serious: Yes (Hospitalization)
  Sender: FDA-Public Use
  Company Number: NL-ABBVIE-19S-114-2614680-00

PATIENT
  Age: 79 Year
  Sex: Female

DRUGS (15)
  1. SINEMET [Concomitant]
     Active Substance: CARBIDOPA\LEVODOPA
     Indication: PRODUCT USED FOR UNKNOWN INDICATION
  2. TEMAZEPAM. [Concomitant]
     Active Substance: TEMAZEPAM
     Indication: SLEEP DISORDER THERAPY
     Dosage: 2X PER WEEK 10MG IF NEEDED
  3. LEVODOPA/CARBIDOPA [Concomitant]
     Active Substance: CARBIDOPA\LEVODOPA
     Indication: PARKINSON^S DISEASE
  4. DUODOPA [Suspect]
     Active Substance: CARBIDOPA\LEVODOPA
     Dosage: MD: 11.0 ML, CD: 2.8 ML/HR, ED: 1.0 ML
     Route: 050
  5. LEVODOPA/CARBIDOPA [Concomitant]
     Active Substance: CARBIDOPA\LEVODOPA
     Indication: PRODUCT USED FOR UNKNOWN INDICATION
     Dosage: 2 PIECES BEFORE NIGHT
  6. NEUPRO [Concomitant]
     Active Substance: ROTIGOTINE
     Indication: PAIN
     Dosage: 24 HOURS ADMINISTRATION
  7. DUODOPA [Suspect]
     Active Substance: CARBIDOPA\LEVODOPA
     Dosage: MD: 11.0 ML, CD: 2.9 ML/HR, ED: 1.0 ML
     Route: 050
  8. DUODOPA [Suspect]
     Active Substance: CARBIDOPA\LEVODOPA
     Dosage: MD: 11.0 ML, CD: 3.1 ML/H, ED: 1.0 ML
     Route: 050
  9. DUODOPA [Suspect]
     Active Substance: CARBIDOPA\LEVODOPA
     Dosage: MD 11.0 ML; CD 4.6 ML/H; ED 1.0 ML
     Route: 050
  10. DUODOPA [Suspect]
     Active Substance: CARBIDOPA\LEVODOPA
     Dosage: MD 11.0 ML, CD 2.7 ML/H, ED 1.0 ML
     Route: 050
     Dates: start: 20190617
  11. TERRA?CORTRIL [Concomitant]
     Active Substance: HYDROCORTISONE ACETATE\OXYTETRACYCLINE HYDROCHLORIDE
     Indication: EXCESSIVE GRANULATION TISSUE
  12. DUODOPA [Suspect]
     Active Substance: CARBIDOPA\LEVODOPA
     Indication: PARKINSON^S DISEASE
     Dosage: MD 11 CD 2.7 ED 1.0ML, 1 CASSETTE
     Route: 050
     Dates: start: 20181212
  13. DUODOPA [Suspect]
     Active Substance: CARBIDOPA\LEVODOPA
     Dosage: CD 2.5 (DECREASED CONTINUOUS DOSE FROM 2.7 ML/HR TO 2.5 ML/HR)
     Route: 050
  14. DUODOPA [Suspect]
     Active Substance: CARBIDOPA\LEVODOPA
     Dosage: MD: 11.0 ML, CD: 3.8 ML/H, ED: 1.0 ML
     Route: 050
  15. DUODOPA [Suspect]
     Active Substance: CARBIDOPA\LEVODOPA
     Dosage: MD: 11.0 ML, CD: 3.9 ML/H, ED: 1.0 ML
     Route: 050

REACTIONS (65)
  - Stress [Not Recovered/Not Resolved]
  - Musculoskeletal stiffness [Recovering/Resolving]
  - Mobility decreased [Not Recovered/Not Resolved]
  - Parkinsonian gait [Unknown]
  - Fatigue [Recovering/Resolving]
  - Stoma site discharge [Recovered/Resolved]
  - Freezing phenomenon [Not Recovered/Not Resolved]
  - Hallucination [Recovered/Resolved]
  - Hypophagia [Not Recovered/Not Resolved]
  - Dysphagia [Not Recovered/Not Resolved]
  - Device dislocation [Not Recovered/Not Resolved]
  - Aptyalism [Not Recovered/Not Resolved]
  - Device issue [Unknown]
  - Hearing aid user [Not Recovered/Not Resolved]
  - Dyskinesia [Recovering/Resolving]
  - Insomnia [Not Recovered/Not Resolved]
  - Excessive granulation tissue [Unknown]
  - Fall [Not Recovered/Not Resolved]
  - Parkinson^s disease [Not Recovered/Not Resolved]
  - Feeding disorder [Recovered/Resolved]
  - Gait disturbance [Not Recovered/Not Resolved]
  - Medical device site discomfort [Recovered/Resolved]
  - Muscle rigidity [Not Recovered/Not Resolved]
  - Drug metabolite level high [Unknown]
  - Accident [Unknown]
  - Abnormal dreams [Not Recovered/Not Resolved]
  - Loss of personal independence in daily activities [Not Recovered/Not Resolved]
  - Intentional product misuse [Not Recovered/Not Resolved]
  - Feeling abnormal [Not Recovered/Not Resolved]
  - Therapeutic product effect incomplete [Not Recovered/Not Resolved]
  - Hyperkinesia [Recovering/Resolving]
  - Stoma site pain [Recovered/Resolved]
  - Stoma site hypoaesthesia [Recovered/Resolved]
  - Somnolence [Not Recovered/Not Resolved]
  - Fine motor skill dysfunction [Not Recovered/Not Resolved]
  - Stoma site haemorrhage [Recovered/Resolved]
  - Joint dislocation [Not Recovered/Not Resolved]
  - Device issue [Not Recovered/Not Resolved]
  - Tension [Not Recovered/Not Resolved]
  - Hyponatraemia [Unknown]
  - Asthenia [Not Recovered/Not Resolved]
  - Weight decreased [Recovered/Resolved]
  - Fatigue [Not Recovered/Not Resolved]
  - Stoma site haemorrhage [Recovered/Resolved]
  - Stoma site irritation [Recovered/Resolved]
  - Unevaluable event [Not Recovered/Not Resolved]
  - On and off phenomenon [Not Recovered/Not Resolved]
  - Hallucination [Recovered/Resolved]
  - Arthralgia [Recovering/Resolving]
  - Decreased appetite [Not Recovered/Not Resolved]
  - Device difficult to use [Not Recovered/Not Resolved]
  - Gait inability [Recovering/Resolving]
  - Nocturia [Not Recovered/Not Resolved]
  - Stoma site erythema [Not Recovered/Not Resolved]
  - Confusional state [Recovered/Resolved]
  - Fibroma [Recovered/Resolved]
  - Ageusia [Not Recovered/Not Resolved]
  - Faeces hard [Recovered/Resolved]
  - Balance disorder [Not Recovered/Not Resolved]
  - Urinary tract infection [Not Recovered/Not Resolved]
  - Medical device site pain [Recovered/Resolved]
  - Stoma site discharge [Recovered/Resolved]
  - Stoma site discharge [Not Recovered/Not Resolved]
  - Malaise [Recovered/Resolved]
  - Medical device site pain [Recovered/Resolved]

NARRATIVE: CASE EVENT DATE: 201812
